FAERS Safety Report 6745598-3 (Version None)
Quarter: 2010Q2

REPORT INFORMATION
  Report Type: 
  Country: None (occurrence: None)
  Receive Date: 20100528
  Receipt Date: 20100519
  Transmission Date: 20101027
  Serious: Yes (Life-Threatening, Other)
  Sender: FDA-Public Use
  Company Number: JP-ABBOTT-10P-087-0631309-00

PATIENT
  Sex: Female
  Weight: 43 kg

DRUGS (7)
  1. SEVOFLURANE [Suspect]
     Indication: ANAESTHESIA
     Dosage: 1% X 6 L
     Route: 055
     Dates: start: 20081104, end: 20081104
  2. ROCURONIUM BROMIDE [Concomitant]
     Indication: ENDOTRACHEAL INTUBATION
     Route: 042
     Dates: start: 20081104, end: 20081104
  3. ROCURONIUM BROMIDE [Concomitant]
     Indication: HYPOTONIA
     Dates: start: 20081104, end: 20081104
  4. REMIFENTANIL [Concomitant]
     Indication: GENERAL ANAESTHESIA
     Route: 041
     Dates: start: 20081104, end: 20081104
  5. PROPOFOL [Concomitant]
     Indication: INDUCTION OF ANAESTHESIA
     Route: 040
     Dates: start: 20081104, end: 20081104
  6. ETILEFRINE HYDROCHLORIDE [Concomitant]
     Indication: BLOOD PRESSURE ABNORMAL
     Route: 042
     Dates: start: 20081104, end: 20081104
  7. DOPAMINE HCL [Concomitant]
     Indication: BLOOD PRESSURE MANAGEMENT
     Dates: start: 20081111, end: 20081111

REACTIONS (3)
  - ELECTROCARDIOGRAM QT PROLONGED [None]
  - TORSADE DE POINTES [None]
  - VENTRICULAR EXTRASYSTOLES [None]
